FAERS Safety Report 19463845 (Version 1)
Quarter: 2021Q2

REPORT INFORMATION
  Report Type: Spontaneous
  Country: US (occurrence: US)
  Receive Date: 20210625
  Receipt Date: 20210625
  Transmission Date: 20210717
  Serious: No
  Sender: FDA-Public Use
  Company Number: US-SA-2021SA202361

PATIENT
  Age: 74 Year
  Sex: Male

DRUGS (4)
  1. ELIQUIS [Concomitant]
     Active Substance: APIXABAN
  2. MAGNESIUM [Concomitant]
     Active Substance: MAGNESIUM
  3. POTASSIUM [Concomitant]
     Active Substance: POTASSIUM
  4. MULTAQ [Suspect]
     Active Substance: DRONEDARONE
     Indication: ATRIAL FIBRILLATION
     Dosage: 400 MG, Q12H
     Dates: start: 20210614

REACTIONS (4)
  - Heart rate increased [Unknown]
  - Palpitations [Unknown]
  - Anxiety [Unknown]
  - Extrasystoles [Unknown]

NARRATIVE: CASE EVENT DATE: 20210615
